FAERS Safety Report 17623115 (Version 1)
Quarter: 2020Q1

REPORT INFORMATION
  Report Type: Spontaneous
  Country: US (occurrence: US)
  Receive Date: 20200330
  Receipt Date: 20200330
  Transmission Date: 20200409
  Serious: Yes (Life-Threatening)
  Sender: FDA-Public Use
  Company Number: None

PATIENT
  Age: 39 Year
  Sex: Male

DRUGS (1)
  1. ULTIMATE CBD VAPE ADDITIVE (CBD OIL) [Suspect]
     Active Substance: CANNABIDIOL\DEVICE\HERBALS

REACTIONS (3)
  - Product formulation issue [None]
  - Therapeutic response unexpected [None]
  - Euphoric mood [None]

NARRATIVE: CASE EVENT DATE: 20200301
